FAERS Safety Report 12631308 (Version 2)
Quarter: 2016Q3

REPORT INFORMATION
  Report Type: Spontaneous
  Country: US (occurrence: US)
  Receive Date: 20160808
  Receipt Date: 20160808
  Transmission Date: 20161109
  Serious: No
  Sender: FDA-Public Use
  Company Number: US-BEH-2015053251

PATIENT
  Sex: Male
  Weight: 83 kg

DRUGS (15)
  1. LMX [Concomitant]
     Active Substance: LIDOCAINE
  2. TRAMADOL. [Concomitant]
     Active Substance: TRAMADOL
  3. METHYPREDNISONE [Concomitant]
  4. MULTIVITAMIN [Concomitant]
     Active Substance: VITAMINS
  5. POTASSIUM [Concomitant]
     Active Substance: POTASSIUM
  6. HIZENTRA [Suspect]
     Active Substance: HUMAN IMMUNOGLOBULIN G
     Indication: HUMORAL IMMUNE DEFECT
     Route: 058
  7. IRBESTAN [Concomitant]
  8. TESTOSTERONE. [Concomitant]
     Active Substance: TESTOSTERONE
  9. FLOVENT [Concomitant]
     Active Substance: FLUTICASONE PROPIONATE
  10. DILTIAZEM. [Concomitant]
     Active Substance: DILTIAZEM
  11. ACETAMINOPHEN. [Concomitant]
     Active Substance: ACETAMINOPHEN
  12. DIPHENHYDRAMINE. [Concomitant]
     Active Substance: DIPHENHYDRAMINE
  13. EPIPEN [Concomitant]
     Active Substance: EPINEPHRINE
     Indication: ANAPHYLACTIC REACTION
  14. HYDROCORTISONE. [Concomitant]
     Active Substance: HYDROCORTISONE
  15. OMEPRAZOLE. [Concomitant]
     Active Substance: OMEPRAZOLE

REACTIONS (1)
  - Infusion site vesicles [Unknown]
